FAERS Safety Report 7802675-3 (Version None)
Quarter: 2011Q4

REPORT INFORMATION
  Report Type: 
  Country: None (occurrence: None)
  Receive Date: 20111007
  Receipt Date: 20110927
  Transmission Date: 20120403
  Serious: Yes (Hospitalization, Other)
  Sender: FDA-Public Use
  Company Number: PHHY2010GB07938

PATIENT
  Sex: Male
  Weight: 64.5 kg

DRUGS (14)
  1. METHOTREXATE [Concomitant]
     Indication: ANKYLOSING SPONDYLITIS
     Dosage: 17.5 MG, WEEKLY
     Route: 048
  2. TRAMADOL HCL [Concomitant]
     Dosage: 50 MG, BID
     Route: 048
  3. MULTI-VITAMINS [Concomitant]
  4. GLUCOSAMINE [Concomitant]
  5. CODEINE PHOSPHATE [Concomitant]
     Indication: PAIN
     Dosage: 30 MG/DAY
     Route: 048
  6. CODEINE PHOSPHATE [Concomitant]
     Indication: CROHN'S DISEASE
  7. FOLIC ACID [Concomitant]
     Dosage: 5 MG, QW
     Route: 048
  8. GARLIC [Concomitant]
  9. CELEBREX [Concomitant]
     Indication: ANKYLOSING SPONDYLITIS
     Dosage: 200 MG, BID
     Route: 048
  10. METHOTREXATE [Concomitant]
     Dosage: 12.5 MG, QW
     Route: 048
  11. CLOZAPINE [Suspect]
     Indication: SCHIZOPHRENIA
     Dosage: 300 MG/DAY
     Route: 048
     Dates: start: 20090518, end: 20110404
  12. OMEPRAZOLE MAGNESIUM [Concomitant]
     Dosage: 20 MG, UNK
     Route: 048
  13. FISH OIL [Concomitant]
  14. CLOZAPINE [Suspect]
     Route: 048

REACTIONS (12)
  - BLOOD ALBUMIN DECREASED [None]
  - STAPHYLOCOCCAL INFECTION [None]
  - BLOOD SODIUM DECREASED [None]
  - DYSPNOEA [None]
  - C-REACTIVE PROTEIN INCREASED [None]
  - PNEUMONIA [None]
  - BLOOD ALKALINE PHOSPHATASE INCREASED [None]
  - PLATELET COUNT INCREASED [None]
  - ACTIVATED PARTIAL THROMBOPLASTIN TIME PROLONGED [None]
  - BLOOD FIBRINOGEN INCREASED [None]
  - LOWER RESPIRATORY TRACT INFECTION [None]
  - PYREXIA [None]
